FAERS Safety Report 11137622 (Version 2)
Quarter: 2015Q3

REPORT INFORMATION
  Report Type: Spontaneous
  Country: DE (occurrence: DE)
  Receive Date: 20150526
  Receipt Date: 20150805
  Transmission Date: 20151125
  Serious: Yes (Hospitalization, Other)
  Sender: FDA-Public Use
  Company Number: DE-MYLANLABS-2015M1016644

PATIENT

DRUGS (13)
  1. DOMPERIDONE [Suspect]
     Active Substance: DOMPERIDONE
     Indication: PRODUCT USED FOR UNKNOWN INDICATION
     Dosage: UNK, ONCE (UNKNOWN AMOUNT)
     Route: 048
     Dates: start: 20150513, end: 20150513
  2. JANUVIA [Suspect]
     Active Substance: SITAGLIPTIN PHOSPHATE
     Indication: PRODUCT USED FOR UNKNOWN INDICATION
     Dosage: UNK, ONCE (100 MG TABLET, UNKNOWN AMOUNT)
     Route: 048
     Dates: start: 20150513, end: 20150513
  3. PRAVASTATIN [Suspect]
     Active Substance: PRAVASTATIN\PRAVASTATIN SODIUM
     Indication: PRODUCT USED FOR UNKNOWN INDICATION
     Dosage: UNK, ONCE (UNKNOWN AMOUNT)
     Route: 048
     Dates: start: 20150513, end: 20150513
  4. MARCUMAR [Suspect]
     Active Substance: PHENPROCOUMON
     Indication: PRODUCT USED FOR UNKNOWN INDICATION
     Dosage: UNK, ONCE (3 MG TABLET UNKNOWN AMOUNT)
     Dates: start: 20150513, end: 20150513
  5. RAMIPRIL. [Suspect]
     Active Substance: RAMIPRIL
     Indication: PRODUCT USED FOR UNKNOWN INDICATION
     Dosage: UNK, ONCE (KNOWN AMOUT)
     Route: 048
     Dates: start: 20150513, end: 20150513
  6. LAMOTRIGIN [Suspect]
     Active Substance: LAMOTRIGINE
     Indication: PRODUCT USED FOR UNKNOWN INDICATION
     Dosage: UNK, ONCE (100 MG TABLET, UNKNOWN AMOUNT)
     Route: 048
     Dates: start: 20150513, end: 20150513
  7. ACTRAPHANE [Suspect]
     Active Substance: INSULIN HUMAN
     Indication: PRODUCT USED FOR UNKNOWN INDICATION
     Dosage: UNK, ONCE
     Route: 058
     Dates: start: 20150513, end: 20150513
  8. LAMOTRIGIN [Suspect]
     Active Substance: LAMOTRIGINE
     Indication: PRODUCT USED FOR UNKNOWN INDICATION
     Dosage: UNK, ONCE (UNKNOWN AMOUNT)
     Route: 048
     Dates: start: 20150513, end: 20150513
  9. CELEBREX [Suspect]
     Active Substance: CELECOXIB
     Indication: PRODUCT USED FOR UNKNOWN INDICATION
     Dosage: UNK, ONCE (200 MG TABLET, UNKNOWN AMOUNT)
     Route: 048
     Dates: start: 20150513, end: 20150513
  10. TORASEMIDE [Suspect]
     Active Substance: TORSEMIDE
     Indication: PRODUCT USED FOR UNKNOWN INDICATION
     Dosage: UNK, ONCE (UNKNOWN AMOUNT)
     Route: 048
     Dates: start: 20150513, end: 20150513
  11. AMITRIPTINE [Suspect]
     Active Substance: AMITRIPTYLINE
     Indication: PRODUCT USED FOR UNKNOWN INDICATION
     Dosage: UNK, ONCE (25 MG TABLET UNKNOWN AMOUT)
     Route: 048
     Dates: start: 20150513, end: 20150513
  12. TARGIN [Suspect]
     Active Substance: NALOXONE HYDROCHLORIDE\OXYCODONE HYDROCHLORIDE
     Indication: PRODUCT USED FOR UNKNOWN INDICATION
     Dosage: UNK, ONCE (UNKNNOWN AMOUNT)
     Route: 048
     Dates: start: 20150513, end: 20150513
  13. METOPROLOL MYLAN 50 MG [Suspect]
     Active Substance: METOPROLOL TARTRATE
     Indication: PRODUCT USED FOR UNKNOWN INDICATION
     Dosage: UNK, ONCE (UNKNOWN AMOUNT)
     Route: 048
     Dates: start: 20150513, end: 20150513

REACTIONS (5)
  - Blood potassium increased [Unknown]
  - Normochromic normocytic anaemia [Unknown]
  - Suicide attempt [Unknown]
  - Fatigue [Unknown]
  - Speech disorder [Unknown]

NARRATIVE: CASE EVENT DATE: 20150513
